FAERS Safety Report 5888249-2 (Version None)
Quarter: 2008Q3

REPORT INFORMATION
  Report Type: 
  Country: None (occurrence: None)
  Receive Date: 20080918
  Receipt Date: 20080912
  Transmission Date: 20090109
  Serious: Yes (Other)
  Sender: FDA-Public Use
  Company Number: US-ASTRAZENECA-2008UW18986

PATIENT
  Sex: Male
  Weight: 181.4 kg

DRUGS (3)
  1. SEROQUEL [Suspect]
     Route: 048
  2. METHADONE HCL [Interacting]
     Indication: PAIN
  3. LOPRESSOR [Concomitant]

REACTIONS (2)
  - DRUG INTERACTION [None]
  - HYPOTENSION [None]
